FAERS Safety Report 13094246 (Version 1)
Quarter: 2017Q1

REPORT INFORMATION
  Report Type: Other
  Country: TR (occurrence: US)
  Receive Date: 20170106
  Receipt Date: 20170106
  Transmission Date: 20170509
  Serious: Yes (Hospitalization)
  Sender: FDA-Public Use
  Company Number: US-DRUG SAFETY NAVIGATOR-1061643

PATIENT
  Age: 53 Year
  Sex: Female

DRUGS (4)
  1. PRAMIPEXOLE. [Concomitant]
     Active Substance: PRAMIPEXOLE
  2. FLUOXETINE [Concomitant]
     Active Substance: FLUOXETINE HYDROCHLORIDE
  3. CLARITHROMYCIN. [Concomitant]
     Active Substance: CLARITHROMYCIN
  4. ERGOMAR [Suspect]
     Active Substance: ERGOTAMINE TARTRATE
     Indication: MIGRAINE

REACTIONS (1)
  - Stress cardiomyopathy [Recovered/Resolved]
